FAERS Safety Report 7116188-8 (Version None)
Quarter: 2010Q4

REPORT INFORMATION
  Report Type: 
  Country: None (occurrence: None)
  Receive Date: 20101122
  Receipt Date: 20101111
  Transmission Date: 20110411
  Serious: Yes (Other)
  Sender: FDA-Public Use
  Company Number: GB-NOVOPROD-314030

PATIENT
  Sex: Male
  Weight: 78 kg

DRUGS (3)
  1. NOVOLOG MIX 70/30 [Suspect]
     Indication: TYPE 1 DIABETES MELLITUS
     Dosage: 26 AM+ 6 PM
     Route: 058
  2. NOVOLOG MIX 70/30 [Suspect]
     Indication: DRUG DISPENSING ERROR
  3. MIXTARD HUMAN 70/30 [Suspect]
     Indication: TYPE 1 DIABETES MELLITUS
     Dosage: 32 IU, QD (26+6)
     Route: 058
     Dates: start: 20050314

REACTIONS (4)
  - BLOOD GLUCOSE FLUCTUATION [None]
  - DRUG DISPENSING ERROR [None]
  - HYPOGLYCAEMIA [None]
  - PAIN IN EXTREMITY [None]
